FAERS Safety Report 5136805-1 (Version None)
Quarter: 2006Q4

REPORT INFORMATION
  Report Type: 
  Country: None (occurrence: None)
  Receive Date: 20061023
  Receipt Date: 20061010
  Transmission Date: 20070319
  Serious: Yes (Hospitalization)
  Sender: FDA-Public Use
  Company Number: 231094

PATIENT
  Age: 74 Year
  Sex: Male
  Weight: 100 kg

DRUGS (6)
  1. MABTHERA (RITUXIMAB) CONC FOR SOLUTION FOR INFUSION [Suspect]
     Indication: LYMPHOMA
     Dosage: 800 MG, INTRAVENOUS
     Route: 042
     Dates: start: 20060612, end: 20060816
  2. CYCLOPHOSPHAMIDE [Suspect]
     Indication: LYMPHOMA
     Dosage: 1.6 G, INTRAVENOUS
     Route: 042
     Dates: start: 20060612, end: 20060816
  3. VINCRISTINE [Suspect]
     Indication: LYMPHOMA
     Dosage: 2 MG, INTRAVENOUS
     Route: 042
     Dates: start: 20060612, end: 20060816
  4. DOXORUBICIN HCL [Suspect]
     Indication: LYMPHOMA
     Dosage: 100  MG, INTRAVENOUS
     Route: 042
     Dates: start: 20060612, end: 20060816
  5. PREDNISOLONE [Concomitant]
  6. METHOTREXATE [Concomitant]

REACTIONS (2)
  - EXTRAVASATION [None]
  - INJECTION SITE NECROSIS [None]
